FAERS Safety Report 4519105-X (Version None)
Quarter: 2004Q4

REPORT INFORMATION
  Report Type: 
  Country: None (occurrence: None)
  Receive Date: 20041206
  Receipt Date: 20041124
  Transmission Date: 20050328
  Serious: Yes (Other)
  Sender: FDA-Public Use
  Company Number: HQWYE650908OCT04

PATIENT
  Age: 47 Year
  Sex: Female

DRUGS (4)
  1. ENBREL [Suspect]
     Indication: RHEUMATOID ARTHRITIS
     Route: 058
  2. CORTICOSTEROID NOS [Suspect]
     Dosage: UNKNOWN DOSE DAILY
  3. CORTICOSTEROID NOS [Suspect]
     Dosage: UNKNOWN DOSE EVERY OTHER DAY
  4. METHOTREXATE [Suspect]
     Dosage: UNKNOWN DOSE AND FREQUENCY

REACTIONS (1)
  - PULMONARY FIBROSIS [None]
